FAERS Safety Report 20516250 (Version 2)
Quarter: 2022Q3

REPORT INFORMATION
  Report Type: Spontaneous
  Country: US (occurrence: None)
  Receive Date: 20220225
  Receipt Date: 20220914
  Transmission Date: 20221026
  Serious: Yes (Other)
  Sender: FDA-Public Use
  Company Number: 2022A079677

PATIENT
  Age: 24821 Day
  Sex: Female
  Weight: 115.2 kg

DRUGS (88)
  1. NEXIUM [Suspect]
     Active Substance: ESOMEPRAZOLE MAGNESIUM
     Indication: Gastrooesophageal reflux disease
     Route: 048
     Dates: start: 2006, end: 2017
  2. NEXIUM [Suspect]
     Active Substance: ESOMEPRAZOLE MAGNESIUM
     Indication: Gastrooesophageal reflux disease
     Route: 048
     Dates: start: 2006, end: 2017
  3. NEXIUM [Suspect]
     Active Substance: ESOMEPRAZOLE MAGNESIUM
     Indication: Gastrooesophageal reflux disease
     Dosage: GENERIC
     Route: 065
  4. NEXIUM [Suspect]
     Active Substance: ESOMEPRAZOLE MAGNESIUM
     Indication: Gastrooesophageal reflux disease
     Dosage: GENERIC
     Route: 065
  5. OMEPRAZOLE [Suspect]
     Active Substance: OMEPRAZOLE
     Indication: Gastrooesophageal reflux disease
     Dosage: GENERIC
     Route: 065
     Dates: start: 2010, end: 2019
  6. OMEPRAZOLE [Suspect]
     Active Substance: OMEPRAZOLE
     Indication: Gastrooesophageal reflux disease
     Dosage: GENERIC
     Route: 065
     Dates: start: 2010, end: 2019
  7. PREVACID [Suspect]
     Active Substance: LANSOPRAZOLE
     Indication: Gastrooesophageal reflux disease
     Route: 065
     Dates: start: 2006, end: 2017
  8. PREVACID [Suspect]
     Active Substance: LANSOPRAZOLE
     Indication: Gastrooesophageal reflux disease
     Route: 065
     Dates: start: 2006, end: 2017
  9. PREVACID [Suspect]
     Active Substance: LANSOPRAZOLE
     Indication: Gastrooesophageal reflux disease
     Route: 065
     Dates: start: 1995, end: 2018
  10. PREVACID [Suspect]
     Active Substance: LANSOPRAZOLE
     Indication: Gastrooesophageal reflux disease
     Route: 065
     Dates: start: 1995, end: 2018
  11. PREVACID [Suspect]
     Active Substance: LANSOPRAZOLE
     Indication: Gastrooesophageal reflux disease
     Dosage: GENERIC
     Route: 065
     Dates: start: 2010
  12. PREVACID [Suspect]
     Active Substance: LANSOPRAZOLE
     Indication: Gastrooesophageal reflux disease
     Dosage: GENERIC
     Route: 065
     Dates: start: 2010
  13. PANTOPRAZOLE [Suspect]
     Active Substance: PANTOPRAZOLE
     Indication: Gastrooesophageal reflux disease
     Dosage: GENERIC
     Route: 065
     Dates: start: 2014
  14. PANTOPRAZOLE [Suspect]
     Active Substance: PANTOPRAZOLE
     Indication: Gastrooesophageal reflux disease
     Dosage: GENERIC
     Route: 065
     Dates: start: 2014
  15. PANTOPRAZOLE [Suspect]
     Active Substance: PANTOPRAZOLE
     Indication: Gastrooesophageal reflux disease
     Dosage: GENERIC
     Route: 065
     Dates: start: 2017
  16. PANTOPRAZOLE [Suspect]
     Active Substance: PANTOPRAZOLE
     Indication: Gastrooesophageal reflux disease
     Dosage: GENERIC
     Route: 065
     Dates: start: 2017
  17. CELEBREX [Concomitant]
     Active Substance: CELECOXIB
     Indication: Pain
  18. KETOROLAC [Concomitant]
     Active Substance: KETOROLAC TROMETHAMINE
     Indication: Pain
  19. NAPROXEN [Concomitant]
     Active Substance: NAPROXEN
     Indication: Infection
  20. TRAMADOL [Concomitant]
     Active Substance: TRAMADOL
     Indication: Infection
  21. AMOXICILLIN [Concomitant]
     Active Substance: AMOXICILLIN
     Indication: Infection
  22. CEFUROXIME [Concomitant]
     Active Substance: CEFUROXIME
     Indication: Infection
  23. CIPROFLOXACIN [Concomitant]
     Active Substance: CIPROFLOXACIN
     Indication: Infection
  24. DOXYCYCLINE [Concomitant]
     Active Substance: DOXYCYCLINE
     Indication: Infection
  25. ERYTHROMYCIN [Concomitant]
     Active Substance: ERYTHROMYCIN
     Indication: Infection
  26. MOXIFLOXACIN [Concomitant]
     Active Substance: MOXIFLOXACIN
     Indication: Infection
  27. NEOMYCIN [Concomitant]
     Active Substance: NEOMYCIN
     Indication: Infection
  28. PENICILLIN [Concomitant]
     Active Substance: PENICILLIN
     Indication: Infection
  29. TRIMETHOPRIM [Concomitant]
     Active Substance: TRIMETHOPRIM
     Indication: Infection
  30. BACTRIM [Concomitant]
     Active Substance: SULFAMETHOXAZOLE\TRIMETHOPRIM
     Indication: Infection
  31. LISINOPRIL [Concomitant]
     Active Substance: LISINOPRIL
     Indication: Blood pressure abnormal
  32. FUROSEMIDE [Concomitant]
     Active Substance: FUROSEMIDE
     Indication: Kidney injury molecule-1
  33. HYDRPCHLOROTHIAZIDE [Concomitant]
     Indication: Blood pressure abnormal
  34. ATORVASTATIN [Concomitant]
     Active Substance: ATORVASTATIN
     Indication: Blood cholesterol abnormal
  35. ROSUVASTATIN [Concomitant]
     Active Substance: ROSUVASTATIN
     Indication: Blood cholesterol abnormal
  36. SIMVASTATIN [Concomitant]
     Active Substance: SIMVASTATIN
     Indication: Blood cholesterol abnormal
  37. TACROLIMUS [Concomitant]
     Active Substance: TACROLIMUS
     Indication: Renal injury
  38. CARBAMAZEPINE [Concomitant]
     Active Substance: CARBAMAZEPINE
     Indication: Depression
  39. DOXEPIN [Concomitant]
     Active Substance: DOXEPIN
     Indication: Depression
  40. PHENYTOIN [Concomitant]
     Active Substance: PHENYTOIN
     Indication: Anxiety
  41. IBUPROFEN [Concomitant]
     Active Substance: IBUPROFEN
     Indication: Pain
  42. ACETAMINOPHEN [Concomitant]
     Active Substance: ACETAMINOPHEN
     Indication: Pain
  43. ASPIRIN [Concomitant]
     Active Substance: ASPIRIN
     Indication: Pain
  44. PEPCID [Concomitant]
     Active Substance: FAMOTIDINE
  45. ELIDEL [Concomitant]
     Active Substance: PIMECROLIMUS
  46. JANUVIA [Concomitant]
     Active Substance: SITAGLIPTIN PHOSPHATE
  47. NASONEX [Concomitant]
     Active Substance: MOMETASONE FUROATE
  48. PROTOPIC [Concomitant]
     Active Substance: TACROLIMUS
  49. HYDROCORTISONE [Concomitant]
     Active Substance: HYDROCORTISONE
  50. ESCIN/LEVOTHYROXINE [Concomitant]
  51. METOPROLOL SUCCINATE [Concomitant]
     Active Substance: METOPROLOL SUCCINATE
  52. NITROGLYCERIN [Concomitant]
     Active Substance: NITROGLYCERIN
  53. BUPROPION [Concomitant]
     Active Substance: BUPROPION
  54. CODEINE [Concomitant]
     Active Substance: CODEINE
  55. NYSTATIN [Concomitant]
     Active Substance: NYSTATIN
  56. GLIMEPIRIDE [Concomitant]
     Active Substance: GLIMEPIRIDE
  57. CLOBETASOL [Concomitant]
     Active Substance: CLOBETASOL
  58. VITAMIN D3 [Concomitant]
     Active Substance: CHOLECALCIFEROL
  59. LANTUS [Concomitant]
     Active Substance: INSULIN GLARGINE
  60. FLUTICASONE [Concomitant]
     Active Substance: FLUTICASONE
  61. ACETAMINOPHEN\HYDROCODONE BITARTRATE [Concomitant]
     Active Substance: ACETAMINOPHEN\HYDROCODONE BITARTRATE
  62. SERTRALINE [Concomitant]
     Active Substance: SERTRALINE HYDROCHLORIDE
  63. PREDNISONE [Concomitant]
     Active Substance: PREDNISONE
  64. AMPHETAMINE [Concomitant]
     Active Substance: AMPHETAMINE
  65. VALACYCLOVIR [Concomitant]
     Active Substance: VALACYCLOVIR HYDROCHLORIDE
  66. ACETAMINOPHEN\OXYCODONE HYDROCHLORIDE [Concomitant]
     Active Substance: ACETAMINOPHEN\OXYCODONE HYDROCHLORIDE
  67. OFLOXACIN [Concomitant]
     Active Substance: OFLOXACIN
  68. CALCIUM [Concomitant]
     Active Substance: CALCIUM
  69. FENOFIBRATE [Concomitant]
     Active Substance: FENOFIBRATE
  70. CYMBALTA [Concomitant]
     Active Substance: DULOXETINE HYDROCHLORIDE
  71. PROAIR HFA [Concomitant]
     Active Substance: ALBUTEROL SULFATE
  72. PROMETHAZINE [Concomitant]
     Active Substance: PROMETHAZINE HYDROCHLORIDE
  73. MAALOX ANTACID [Concomitant]
     Active Substance: ALUMINUM HYDROXIDE\DIMETHICONE\MAGNESIUM HYDROXIDE
  74. MILK OF MAGNESIA [Concomitant]
     Active Substance: MAGNESIUM HYDROXIDE
  75. PERFLUTREN [Concomitant]
     Active Substance: PERFLUTREN
  76. WARFARIN [Concomitant]
     Active Substance: WARFARIN
  77. ACTOS [Concomitant]
     Active Substance: PIOGLITAZONE HYDROCHLORIDE
  78. CHANTIX [Concomitant]
     Active Substance: VARENICLINE TARTRATE
  79. PLAQUENIL [Concomitant]
     Active Substance: HYDROXYCHLOROQUINE SULFATE
  80. FLEXERIL [Concomitant]
     Active Substance: CYCLOBENZAPRINE HYDROCHLORIDE
  81. AVANDIA [Concomitant]
     Active Substance: ROSIGLITAZONE MALEATE
  82. MORPHINE [Concomitant]
     Active Substance: MORPHINE
  83. HYDROXYZINE [Concomitant]
     Active Substance: HYDROXYZINE HYDROCHLORIDE
  84. KLONOPIN [Concomitant]
     Active Substance: CLONAZEPAM
  85. LORAZEPAM [Concomitant]
     Active Substance: LORAZEPAM
  86. METFORMIN [Concomitant]
     Active Substance: METFORMIN HYDROCHLORIDE
  87. RITALIN [Concomitant]
     Active Substance: METHYLPHENIDATE HYDROCHLORIDE
  88. REGLAN [Concomitant]
     Active Substance: METOCLOPRAMIDE HYDROCHLORIDE

REACTIONS (4)
  - Chronic kidney disease [Not Recovered/Not Resolved]
  - Acute kidney injury [Not Recovered/Not Resolved]
  - Renal failure [Unknown]
  - Nephrogenic anaemia [Unknown]

NARRATIVE: CASE EVENT DATE: 20140227
